FAERS Safety Report 7532318-8 (Version None)
Quarter: 2011Q2

REPORT INFORMATION
  Report Type: 
  Country: None (occurrence: None)
  Receive Date: 20110608
  Receipt Date: 20110602
  Transmission Date: 20111010
  Serious: Yes (Hospitalization, Disabling, Other)
  Sender: FDA-Public Use
  Company Number: US-MERCK-0802USA02812

PATIENT
  Age: 59 Year
  Sex: Female
  Weight: 83 kg

DRUGS (7)
  1. SYNTHROID [Concomitant]
     Indication: HYPOTHYROIDISM
     Route: 048
  2. FOSAMAX PLUS D [Suspect]
     Indication: POSTMENOPAUSE
     Route: 048
  3. VITAMIN D (UNSPECIFIED) [Concomitant]
     Route: 065
  4. LIPITOR [Concomitant]
     Route: 065
  5. FOSAMAX [Suspect]
     Route: 048
     Dates: end: 20080101
  6. FOSAMAX [Suspect]
     Indication: OSTEOPOROSIS PROPHYLAXIS
     Route: 048
     Dates: start: 19980101
  7. CALCIUM (UNSPECIFIED) [Concomitant]
     Route: 065

REACTIONS (5)
  - FRACTURE [None]
  - FALL [None]
  - CONTUSION [None]
  - FEMUR FRACTURE [None]
  - LOW TURNOVER OSTEOPATHY [None]
